FAERS Safety Report 24418150 (Version 2)
Quarter: 2024Q4

REPORT INFORMATION
  Report Type: Spontaneous
  Country: JP (occurrence: JP)
  Receive Date: 20241009
  Receipt Date: 20241016
  Transmission Date: 20250115
  Serious: Yes (Other)
  Sender: NOVARTIS
  Company Number: JP-002147023-PHJP2018JP017096

PATIENT
  Age: 67 Year
  Sex: Male

DRUGS (2)
  1. NEORAL [Suspect]
     Active Substance: CYCLOSPORINE
     Indication: Dermatitis atopic
     Dosage: 200 MG
     Route: 048
  2. PREDNISOLONE [Concomitant]
     Active Substance: PREDNISOLONE
     Indication: Dermatitis atopic
     Dosage: UNK
     Route: 065

REACTIONS (4)
  - Hodgkin^s disease [Recovering/Resolving]
  - Dermatitis exfoliative generalised [Recovering/Resolving]
  - Lymphoedema [Recovering/Resolving]
  - Renal impairment [Unknown]
